FAERS Safety Report 5661953-7 (Version None)
Quarter: 2008Q1

REPORT INFORMATION
  Report Type: 
  Country: None (occurrence: None)
  Receive Date: 20080310
  Receipt Date: 20080310
  Transmission Date: 20080703
  Serious: Yes (Other)
  Sender: FDA-Public Use
  Company Number: None

PATIENT
  Age: 44 Year
  Sex: Female
  Weight: 68.0396 kg

DRUGS (4)
  1. CLARITHROMYCIN [Suspect]
     Indication: EAR INFECTION
     Dosage: 1000MG 1/DAY PO
     Route: 048
     Dates: start: 20080305, end: 20080308
  2. CLARITHROMYCIN [Suspect]
     Indication: SINUSITIS
     Dosage: 1000MG 1/DAY PO
     Route: 048
     Dates: start: 20080305, end: 20080308
  3. FLONAISE [Concomitant]
  4. PAXIL [Concomitant]

REACTIONS (10)
  - ABNORMAL DREAMS [None]
  - AGITATION [None]
  - BLOOD PRESSURE INCREASED [None]
  - CRYING [None]
  - DEPRESSION [None]
  - DRUG HYPERSENSITIVITY [None]
  - FEELING ABNORMAL [None]
  - HEART RATE INCREASED [None]
  - HYPERHIDROSIS [None]
  - MENTAL IMPAIRMENT [None]
